FAERS Safety Report 9101880 (Version 1)
Quarter: 2013Q1

REPORT INFORMATION
  Report Type: Spontaneous
  Country: BR (occurrence: BR)
  Receive Date: 20130218
  Receipt Date: 20130218
  Transmission Date: 20140127
  Serious: Yes (Hospitalization)
  Sender: FDA-Public Use
  Company Number: BR-ASTRAZENECA-2013SE09276

PATIENT
  Age: 655 Month
  Sex: Male
  Weight: 78 kg

DRUGS (7)
  1. CRESTOR [Suspect]
     Indication: BLOOD CHOLESTEROL
     Route: 048
     Dates: start: 201107, end: 201302
  2. CARVEDILOL [Concomitant]
     Indication: ACUTE MYOCARDIAL INFARCTION
     Route: 048
  3. CAPTOPRIL [Concomitant]
     Indication: ACUTE MYOCARDIAL INFARCTION
     Route: 048
  4. ASPIRIN PREVENT [Concomitant]
     Indication: ACUTE MYOCARDIAL INFARCTION
     Route: 048
  5. PLAGREL [Concomitant]
     Indication: ACUTE MYOCARDIAL INFARCTION
     Route: 048
  6. GLIFAGE XR [Concomitant]
     Indication: DIABETES MELLITUS
     Route: 048
  7. XALATAN [Concomitant]
     Indication: GLAUCOMA
     Route: 047

REACTIONS (1)
  - Coronary artery occlusion [Recovered/Resolved]
